FAERS Safety Report 21639161 (Version 2)
Quarter: 2023Q2

REPORT INFORMATION
  Report Type: Spontaneous
  Country: AU (occurrence: AU)
  Receive Date: 20221124
  Receipt Date: 20230426
  Transmission Date: 20230721
  Serious: Yes (Death)
  Sender: FDA-Public Use
  Company Number: AU-SA-SAC20220930001110

PATIENT

DRUGS (1)
  1. MABCAMPATH [Suspect]
     Active Substance: ALEMTUZUMAB
     Dosage: UNK
     Route: 065

REACTIONS (1)
  - Disease recurrence [Fatal]

NARRATIVE: CASE EVENT DATE: 20220101
